FAERS Safety Report 7482731-2 (Version None)
Quarter: 2011Q2

REPORT INFORMATION
  Report Type: 
  Country: None (occurrence: None)
  Receive Date: 20110516
  Receipt Date: 20110427
  Transmission Date: 20111010
  Serious: No
  Sender: FDA-Public Use
  Company Number: US-B.I. PHARMACEUTICALS,INC./RIDGEFIELD-2011-BP-02542BP

PATIENT
  Age: 93 Year
  Sex: Male

DRUGS (15)
  1. DIGOXIN [Concomitant]
  2. LASIX [Concomitant]
  3. COREG [Concomitant]
  4. MULTAQ [Concomitant]
  5. POTASSIUM CHLORIDE [Concomitant]
  6. DIOVAN HCT [Concomitant]
  7. DETROL LA [Concomitant]
  8. LEVOTHYROXINE SODIUM [Concomitant]
  9. PRADAXA [Suspect]
     Indication: CEREBROVASCULAR ACCIDENT PROPHYLAXIS
  10. CARDURA [Concomitant]
  11. DEMADEX [Concomitant]
  12. ALLOPURINOL [Concomitant]
  13. PRADAXA [Suspect]
     Indication: ATRIAL FIBRILLATION
     Dosage: 150 MG
     Route: 048
     Dates: start: 20101201
  14. NORVASC [Concomitant]
  15. CATAPRES-TTS-3 [Concomitant]
     Dosage: 0.3 MG
     Route: 061

REACTIONS (5)
  - FLUID RETENTION [None]
  - JOINT SWELLING [None]
  - EXCORIATION [None]
  - SKIN LESION [None]
  - NAUSEA [None]
